FAERS Safety Report 19961836 (Version 1)
Quarter: 2021Q4

REPORT INFORMATION
  Report Type: Spontaneous
  Country: FR (occurrence: FR)
  Receive Date: 20211018
  Receipt Date: 20211018
  Transmission Date: 20220303
  Serious: Yes (Hospitalization)
  Sender: FDA-Public Use
  Company Number: None

PATIENT
  Age: 1 Year
  Sex: Female
  Weight: 9.2 kg

DRUGS (1)
  1. KEPPRA [Suspect]
     Active Substance: LEVETIRACETAM
     Indication: Epilepsy
     Dosage: 28 GRAM (MISTAKENLY RECEIVED 10 TIMES THE DAILY DOSE)
     Route: 048
     Dates: start: 20210802, end: 20210810

REACTIONS (3)
  - Somnolence [Recovered/Resolved]
  - Incorrect dosage administered [Unknown]
  - Overdose [Unknown]

NARRATIVE: CASE EVENT DATE: 20210802
